FAERS Safety Report 14557789 (Version 1)
Quarter: 2018Q1

REPORT INFORMATION
  Report Type: Spontaneous
  Country: JP (occurrence: JP)
  Receive Date: 20180221
  Receipt Date: 20180221
  Transmission Date: 20180509
  Serious: Yes (Life-Threatening)
  Sender: FDA-Public Use
  Company Number: JP-SUCAMPO PHARMACEUTICALS INC.-SPI201800043

PATIENT
  Age: 84 Year
  Sex: Male

DRUGS (22)
  1. LASIX [Concomitant]
     Active Substance: FUROSEMIDE
     Dosage: 40 MG, QD
     Route: 048
     Dates: start: 20100409
  2. HOCHUEKKITO [Concomitant]
     Active Substance: HERBALS
     Dosage: 1 DF, BID
     Route: 048
     Dates: start: 20171001
  3. CASODEX [Concomitant]
     Active Substance: BICALUTAMIDE
     Dosage: 80 MG, QD
     Route: 048
     Dates: start: 20120907
  4. UNKNOWN [Concomitant]
     Active Substance: UNSPECIFIED INGREDIENT
     Dosage: 40 MG, BID
     Route: 048
     Dates: start: 20100409
  5. UNKNOWN [Concomitant]
     Active Substance: UNSPECIFIED INGREDIENT
     Dosage: 0.2 MG, TID
     Route: 048
     Dates: start: 20100409
  6. RABEPRAZOLE NA [Concomitant]
     Active Substance: RABEPRAZOLE SODIUM
     Dosage: 10 MG, QD
     Route: 048
     Dates: start: 20100707
  7. FERROUS CITRATE NA [Concomitant]
     Active Substance: SODIUM FERROUS CITRATE
     Dosage: 100 MG, QD
     Route: 048
     Dates: start: 20170419
  8. UNKNOWN [Concomitant]
     Active Substance: UNSPECIFIED INGREDIENT
     Dosage: 0.5 MG, QD
     Route: 048
     Dates: start: 20101212
  9. AMITIZA [Suspect]
     Active Substance: LUBIPROSTONE
     Indication: CONSTIPATION
     Dosage: 24 MCG, QD
     Route: 048
     Dates: start: 20180113, end: 20180114
  10. THYRADIN S [Concomitant]
     Active Substance: LEVOTHYROXINE SODIUM
     Dosage: 50 MCG, QD
     Route: 048
     Dates: start: 20100409
  11. BAYASPIRIN [Concomitant]
     Active Substance: ASPIRIN
     Dosage: 100 MG, QD
     Route: 048
     Dates: start: 20101201
  12. NITRODERM [Concomitant]
     Active Substance: NITROGLYCERIN
     Dosage: 25 MG, QD
     Route: 062
     Dates: start: 20150708
  13. CLOPIDOGREL [Concomitant]
     Active Substance: CLOPIDOGREL BISULFATE
     Dosage: 75 MG, QD
     Route: 048
     Dates: start: 20101201
  14. CALTAN [Concomitant]
     Active Substance: CALCIUM CARBONATE
     Dosage: 500 MG, TID
     Route: 048
     Dates: start: 20120606
  15. AZILVA [Concomitant]
     Active Substance: AZILSARTAN KAMEDOXOMIL
     Dosage: 20 MG, BID
     Route: 048
     Dates: start: 20171215
  16. DOXAZOSIN [Concomitant]
     Active Substance: DOXAZOSIN\DOXAZOSIN MESYLATE
     Dosage: 4 MG, QD
     Route: 048
     Dates: start: 20141126
  17. UNKNOWN [Concomitant]
     Active Substance: UNSPECIFIED INGREDIENT
     Dosage: 25 MG, QD
     Route: 048
     Dates: start: 20141224
  18. UNKNOWN [Concomitant]
     Active Substance: UNSPECIFIED INGREDIENT
     Dosage: 5 MG, TID
     Route: 048
     Dates: start: 20100407
  19. UNKNOWN [Concomitant]
     Active Substance: UNSPECIFIED INGREDIENT
     Dosage: 6 MG, QD
     Route: 048
     Dates: start: 20141224
  20. SENNOSIDE [Concomitant]
     Active Substance: SENNOSIDES
     Dosage: 48 MG, QD
     Route: 048
     Dates: start: 20100409
  21. PENLES [Concomitant]
     Active Substance: LIDOCAINE
     Dosage: UNK
     Route: 062
  22. TELEMINSOFT [Concomitant]
     Active Substance: BISACODYL
     Indication: CONSTIPATION
     Dosage: 10 MG, PRN
     Route: 054

REACTIONS (2)
  - Inappropriate schedule of drug administration [Recovered/Resolved]
  - Hypoglycaemia [Recovered/Resolved]

NARRATIVE: CASE EVENT DATE: 20180113
